FAERS Safety Report 14005363 (Version 1)
Quarter: 2017Q3

REPORT INFORMATION
  Report Type: Spontaneous
  Country: FR (occurrence: FR)
  Receive Date: 20170923
  Receipt Date: 20170923
  Transmission Date: 20171128
  Serious: Yes (Hospitalization)
  Sender: FDA-Public Use
  Company Number: FR-ROCHE-1995562

PATIENT
  Age: 54 Year
  Sex: Female

DRUGS (2)
  1. AVASTIN [Suspect]
     Active Substance: BEVACIZUMAB
     Indication: METASTATIC BRONCHIAL CARCINOMA
     Dosage: AVASTIN 25 MG/ML
     Route: 041
     Dates: start: 20160216, end: 20170803
  2. ALIMTA [Suspect]
     Active Substance: PEMETREXED DISODIUM
     Indication: METASTATIC BRONCHIAL CARCINOMA
     Route: 041
     Dates: start: 20160216, end: 20170803

REACTIONS (3)
  - Ischaemic stroke [Not Recovered/Not Resolved]
  - Diplopia [Not Recovered/Not Resolved]
  - Balance disorder [Not Recovered/Not Resolved]

NARRATIVE: CASE EVENT DATE: 20170822
